FAERS Safety Report 11318923 (Version 1)
Quarter: 2015Q3

REPORT INFORMATION
  Report Type: Spontaneous
  Country: US (occurrence: None)
  Receive Date: 20150727
  Receipt Date: 20150727
  Transmission Date: 20151125
  Serious: Yes (Other)
  Sender: FDA-Public Use
  Company Number: None

PATIENT
  Age: 61 Year
  Sex: Female
  Weight: 66.68 kg

DRUGS (10)
  1. LATANOPROST. [Concomitant]
     Active Substance: LATANOPROST
  2. OFLOXACIN. [Concomitant]
     Active Substance: OFLOXACIN
  3. VITAMIN B12 [Concomitant]
     Active Substance: CYANOCOBALAMIN
  4. BIOTIN [Concomitant]
     Active Substance: BIOTIN
  5. LEVOTHYROXINE. [Concomitant]
     Active Substance: LEVOTHYROXINE
  6. COMBIGAN [Suspect]
     Active Substance: BRIMONIDINE TARTRATE\TIMOLOL MALEATE
     Indication: GLAUCOMA
     Route: 047
     Dates: start: 20150201, end: 20150723
  7. AZELASTINE [Concomitant]
     Active Substance: AZELASTINE
  8. BENICAR HCT [Concomitant]
     Active Substance: HYDROCHLOROTHIAZIDE\OLMESARTAN MEDOXOMIL
  9. LOVASTATIN. [Concomitant]
     Active Substance: LOVASTATIN
  10. MELATONIN [Concomitant]
     Active Substance: MELATONIN

REACTIONS (4)
  - Dry eye [None]
  - Intraocular lens implant [None]
  - Conjunctivitis [None]
  - Instillation site erythema [None]

NARRATIVE: CASE EVENT DATE: 20150711
